FAERS Safety Report 5821446-0 (Version None)
Quarter: 2008Q3

REPORT INFORMATION
  Report Type: 
  Country: None (occurrence: None)
  Receive Date: 20080722
  Receipt Date: 20080722
  Transmission Date: 20090109
  Serious: Yes (Other)
  Sender: FDA-Public Use
  Company Number: None

PATIENT
  Sex: Male
  Weight: 68.0396 kg

DRUGS (2)
  1. ACCUTANE [Suspect]
     Indication: ACNE
     Dosage: 2 PILLS AND 1 PILL MORNING AND NIGHT PO
     Route: 048
     Dates: start: 20070801, end: 20071201
  2. ACCUTANE [Suspect]
     Indication: ACNE
     Dosage: 2 PILLS AND 1 PILL MORNING AND NIGHT PO
     Route: 048
     Dates: start: 20071201, end: 20080301

REACTIONS (1)
  - DENTAL CARIES [None]
